FAERS Safety Report 23859724 (Version 7)
Quarter: 2025Q2

REPORT INFORMATION
  Report Type: Report from Study
  Country: CO (occurrence: CO)
  Receive Date: 20240515
  Receipt Date: 20250403
  Transmission Date: 20250717
  Serious: Yes (Hospitalization, Other)
  Sender: CHIESI
  Company Number: CO-AMRYT PHARMACEUTICALS DAC-AEGR007117

PATIENT
  Age: 25 Year
  Sex: Female

DRUGS (3)
  1. METRELEPTIN [Suspect]
     Active Substance: METRELEPTIN
     Indication: Congenital generalised lipodystrophy
     Route: 058
     Dates: start: 20210323, end: 20240501
  2. METRELEPTIN [Suspect]
     Active Substance: METRELEPTIN
     Route: 058
     Dates: start: 20210323, end: 20240622
  3. METRELEPTIN [Suspect]
     Active Substance: METRELEPTIN
     Route: 058
     Dates: start: 20210323

REACTIONS (8)
  - Respiratory distress [Unknown]
  - Pharyngeal stenosis [Unknown]
  - Laryngeal stenosis [Unknown]
  - Vomiting [Unknown]
  - Diarrhoea [Unknown]
  - Blood glucose decreased [Unknown]
  - Influenza [Unknown]
  - Therapy interrupted [Unknown]

NARRATIVE: CASE EVENT DATE: 20240501
